FAERS Safety Report 8358662-2 (Version None)
Quarter: 2012Q2

REPORT INFORMATION
  Report Type: 
  Country: None (occurrence: None)
  Receive Date: 20120514
  Receipt Date: 20120507
  Transmission Date: 20120825
  Serious: Yes (Hospitalization)
  Sender: FDA-Public Use
  Company Number: FR-MERCK-1205USA01891

PATIENT
  Age: 24 Year
  Sex: Male

DRUGS (6)
  1. AMOXICILLIN TRIHYDRATE [Suspect]
     Route: 042
     Dates: start: 20120219, end: 20120229
  2. PRIMAXIN [Suspect]
     Route: 042
     Dates: start: 20120306, end: 20120309
  3. TACHOSIL [Suspect]
     Indication: HAEMORRHAGE
     Route: 065
     Dates: start: 20120309, end: 20120310
  4. CEFOTAXIME SODIUM [Suspect]
     Route: 042
     Dates: start: 20120308, end: 20120312
  5. GENTAMICIN [Suspect]
     Route: 042
     Dates: start: 20120220, end: 20120229
  6. TAZOBACTAM [Suspect]
     Route: 042
     Dates: start: 20120306, end: 20120308

REACTIONS (2)
  - ANTI FACTOR V ANTIBODY POSITIVE [None]
  - COAGULATION FACTOR V LEVEL DECREASED [None]
